FAERS Safety Report 24233621 (Version 1)
Quarter: 2024Q3

REPORT INFORMATION
  Report Type: Spontaneous
  Country: US (occurrence: US)
  Receive Date: 20240821
  Receipt Date: 20240821
  Transmission Date: 20241017
  Serious: No
  Sender: PERRIGO
  Company Number: US-PERRIGO-24US000464

PATIENT
  Sex: Female
  Weight: 68.934 kg

DRUGS (1)
  1. MINOXIDIL [Suspect]
     Active Substance: MINOXIDIL
     Indication: Alopecia
     Dosage: 1 ML TO LITTLE OVER 1 ML. BID
     Route: 061
     Dates: start: 202307, end: 20231222

REACTIONS (2)
  - Drug ineffective for unapproved indication [Unknown]
  - Incorrect product administration duration [Unknown]
